FAERS Safety Report 6082025-6 (Version None)
Quarter: 2009Q1

REPORT INFORMATION
  Report Type: 
  Country: None (occurrence: None)
  Receive Date: 20090218
  Receipt Date: 20080903
  Transmission Date: 20090719
  Serious: No
  Sender: FDA-Public Use
  Company Number: US-BRISTOL-MYERS SQUIBB COMPANY-14324297

PATIENT
  Age: 62 Year
  Sex: Male

DRUGS (5)
  1. METFORMIN HCL [Suspect]
     Dates: start: 20060101, end: 20080818
  2. DICLOFENAC [Suspect]
     Dates: start: 20060101, end: 20080818
  3. PRAVASTATIN SODIUM [Concomitant]
     Dates: start: 20080501
  4. ENALAPRIL [Concomitant]
     Dates: start: 20070501
  5. AMARYL [Concomitant]
     Dates: start: 20050101

REACTIONS (1)
  - RENAL INJURY [None]
